FAERS Safety Report 18993303 (Version 1)
Quarter: 2021Q1

REPORT INFORMATION
  Report Type: Spontaneous
  Country: US (occurrence: US)
  Receive Date: 20210310
  Receipt Date: 20210310
  Transmission Date: 20210420
  Serious: Yes (Hospitalization)
  Sender: FDA-Public Use
  Company Number: US-UNITED THERAPEUTICS-UNT-2021-003854

PATIENT
  Age: 70 Year
  Sex: Female
  Weight: 63.04 kg

DRUGS (3)
  1. REVATIO [Concomitant]
     Active Substance: SILDENAFIL CITRATE
     Indication: PRODUCT USED FOR UNKNOWN INDICATION
     Dosage: UNK
     Route: 065
  2. REMODULIN [Suspect]
     Active Substance: TREPROSTINIL
     Indication: PULMONARY ARTERIAL HYPERTENSION
     Dosage: UNK, CONTINUING
     Route: 058
     Dates: start: 20161025
  3. REMODULIN [Suspect]
     Active Substance: TREPROSTINIL
     Dosage: 0.03 ?G/KG, CONTINUING
     Route: 058

REACTIONS (6)
  - Blood calcium increased [Unknown]
  - Dysstasia [Unknown]
  - Confusional state [Unknown]
  - Blood pressure decreased [Unknown]
  - Blood potassium decreased [Unknown]
  - Incoherent [Unknown]

NARRATIVE: CASE EVENT DATE: 20210226
